FAERS Safety Report 8454163-1 (Version None)
Quarter: 2012Q2

REPORT INFORMATION
  Report Type: 
  Country: None (occurrence: None)
  Receive Date: 20120620
  Receipt Date: 20120619
  Transmission Date: 20120825
  Serious: Yes (Congenital Anomaly)
  Sender: FDA-Public Use
  Company Number: GB-GILEAD-2012-0056858

PATIENT
  Sex: Female

DRUGS (3)
  1. EPIVIR [Concomitant]
     Indication: HIV INFECTION
     Dosage: UNK
     Route: 064
  2. TENOFOVIR DISOPROXIL FUMARATE [Suspect]
     Indication: HIV INFECTION
     Dosage: 245 MG, QD
     Route: 064
  3. VIRAMUNE [Concomitant]
     Indication: HIV INFECTION
     Dosage: UNK
     Route: 064

REACTIONS (1)
  - CONGENITAL ANOMALY [None]
